FAERS Safety Report 8542289-3 (Version None)
Quarter: 2012Q3

REPORT INFORMATION
  Report Type: 
  Country: None (occurrence: None)
  Receive Date: 20120726
  Receipt Date: 20120718
  Transmission Date: 20120928
  Serious: Yes (Other)
  Sender: FDA-Public Use
  Company Number: US-PFIZER INC-2012173914

PATIENT
  Sex: Male
  Weight: 79.365 kg

DRUGS (3)
  1. CELEBREX [Suspect]
     Indication: POSTOPERATIVE CARE
     Dosage: UNK, 2X/DAY
     Route: 048
     Dates: start: 20000101, end: 20000901
  2. CELEBREX [Suspect]
     Indication: HEADACHE
  3. PEPCID [Suspect]
     Indication: DYSPEPSIA
     Dosage: UNK

REACTIONS (2)
  - GASTRIC HAEMORRHAGE [None]
  - HAEMATOCHEZIA [None]
